FAERS Safety Report 13797756 (Version 2)
Quarter: 2017Q4

REPORT INFORMATION
  Report Type: Report from Study
  Country: None (occurrence: US)
  Receive Date: 20170727
  Receipt Date: 20171031
  Transmission Date: 20180320
  Serious: Yes (Other)
  Sender: FDA-Public Use
  Company Number: US-ABBVIE-17K-163-2050846-00

PATIENT
  Sex: Male
  Weight: 102.15 kg

DRUGS (7)
  1. HUMIRA [Suspect]
     Active Substance: ADALIMUMAB
     Indication: CROHN^S DISEASE
     Route: 058
     Dates: start: 2016
  2. HUMIRA [Suspect]
     Active Substance: ADALIMUMAB
     Indication: PSORIASIS
  3. METHOTREXATE. [Suspect]
     Active Substance: METHOTREXATE
     Indication: ARTHRALGIA
     Route: 048
     Dates: start: 2016
  4. RASUVO [Concomitant]
     Active Substance: METHOTREXATE SODIUM
     Indication: RHEUMATOID ARTHRITIS
     Route: 050
     Dates: start: 2016
  5. RASUVO [Concomitant]
     Active Substance: METHOTREXATE SODIUM
     Route: 050
  6. HUMIRA [Suspect]
     Active Substance: ADALIMUMAB
     Indication: RHEUMATOID ARTHRITIS
     Route: 058
     Dates: end: 2016
  7. HUMIRA [Suspect]
     Active Substance: ADALIMUMAB
     Indication: COLITIS ULCERATIVE

REACTIONS (5)
  - Rectal haemorrhage [Recovering/Resolving]
  - Drug effect decreased [Recovering/Resolving]
  - Arthralgia [Recovering/Resolving]
  - Gastric haemorrhage [Recovering/Resolving]
  - Memory impairment [Not Recovered/Not Resolved]

NARRATIVE: CASE EVENT DATE: 2016
